FAERS Safety Report 9894483 (Version 1)
Quarter: 2014Q1

REPORT INFORMATION
  Report Type: Spontaneous
  Country: FR (occurrence: FR)
  Receive Date: 20140213
  Receipt Date: 20140213
  Transmission Date: 20141002
  Serious: Yes (Life-Threatening, Hospitalization)
  Sender: FDA-Public Use
  Company Number: FR-ASTRAZENECA-2014SE09742

PATIENT
  Age: 8658 Day
  Sex: Male

DRUGS (2)
  1. XEROQUEL [Suspect]
     Route: 048
     Dates: start: 20140113
  2. XEROQUEL [Suspect]
     Route: 048
     Dates: start: 20140125, end: 20140125

REACTIONS (8)
  - Suicide attempt [Recovered/Resolved]
  - Disinhibition [Unknown]
  - Disorientation [Unknown]
  - Hallucination, visual [Unknown]
  - Abnormal behaviour [Unknown]
  - Memory impairment [Unknown]
  - Mydriasis [Unknown]
  - Intentional drug misuse [Recovered/Resolved]
